FAERS Safety Report 23901309 (Version 28)
Quarter: 2025Q3

REPORT INFORMATION
  Report Type: Report from Study
  Country: US (occurrence: US)
  Receive Date: 20240526
  Receipt Date: 20250915
  Transmission Date: 20251020
  Serious: Yes (Hospitalization, Other)
  Sender: TAKEDA
  Company Number: US-TAKEDA-2023TUS014187

PATIENT
  Age: 48 Year
  Sex: Female

DRUGS (11)
  1. ICATIBANT [Suspect]
     Active Substance: ICATIBANT ACETATE
     Indication: Immune system disorder
  2. ICATIBANT [Suspect]
     Active Substance: ICATIBANT ACETATE
     Indication: Hereditary angioedema
  3. ICATIBANT [Suspect]
     Active Substance: ICATIBANT ACETATE
     Dosage: UNK, UNK, Q3WEEKS
     Dates: start: 20230126
  4. ICATIBANT [Suspect]
     Active Substance: ICATIBANT ACETATE
  5. ICATIBANT [Suspect]
     Active Substance: ICATIBANT ACETATE
  6. ICATIBANT [Suspect]
     Active Substance: ICATIBANT ACETATE
  7. ORLADEYO [Suspect]
     Active Substance: BEROTRALSTAT HYDROCHLORIDE
     Indication: Product used for unknown indication
  8. HAEGARDA [Concomitant]
     Active Substance: HUMAN C1-ESTERASE INHIBITOR
  9. OXYCODONE [Concomitant]
     Active Substance: OXYCODONE
  10. EPINEPHRINE [Concomitant]
     Active Substance: EPINEPHRINE
  11. GABAPENTIN [Concomitant]
     Active Substance: GABAPENTIN

REACTIONS (35)
  - Illness [Unknown]
  - Skin cancer [Unknown]
  - Lymphoma [Unknown]
  - Weight decreased [Recovering/Resolving]
  - Malnutrition [Unknown]
  - Gastrointestinal obstruction [Unknown]
  - Intestinal obstruction [Unknown]
  - Fistula [Unknown]
  - Hereditary angioedema [Not Recovered/Not Resolved]
  - Product use issue [Unknown]
  - Neuralgia [Unknown]
  - Weight increased [Unknown]
  - Poor venous access [Unknown]
  - Emotional disorder [Unknown]
  - Vomiting [Unknown]
  - Affective disorder [Unknown]
  - Mood altered [Unknown]
  - Fatigue [Unknown]
  - Product dose omission issue [Unknown]
  - Fluid intake reduced [Unknown]
  - Anger [Unknown]
  - Stress [Unknown]
  - Irritability [Unknown]
  - COVID-19 [Unknown]
  - Injection site mass [Unknown]
  - Injection site haemorrhage [Unknown]
  - Feeding disorder [Unknown]
  - Gait disturbance [Unknown]
  - Abdominal distension [Unknown]
  - Injection site irritation [Recovered/Resolved]
  - Injection site pain [Recovered/Resolved]
  - Injection site pruritus [Unknown]
  - Injection site erythema [Unknown]
  - Injection site swelling [Recovered/Resolved]
  - Nausea [Unknown]

NARRATIVE: CASE EVENT DATE: 20230126
